FAERS Safety Report 9492300 (Version 1)
Quarter: 2013Q3

REPORT INFORMATION
  Report Type: Spontaneous
  Country: CA (occurrence: CA)
  Receive Date: 20130830
  Receipt Date: 20130830
  Transmission Date: 20140515
  Serious: Yes (Hospitalization, Other)
  Sender: FDA-Public Use
  Company Number: PHHY2013CA092602

PATIENT
  Age: 80 Year
  Sex: Female
  Weight: 72 kg

DRUGS (11)
  1. ALENDRONATE [Suspect]
     Dosage: 70 MG, QW
  2. ACETYLSALICYLIC ACID [Concomitant]
  3. CRESTOR [Concomitant]
  4. HYDROCHLOROTHIAZIDE [Concomitant]
  5. LECTOPAM [Concomitant]
  6. MAVIK [Concomitant]
  7. NITROGLYCERIN [Concomitant]
  8. NORVASC [Concomitant]
  9. PANTOLOC [Concomitant]
  10. VITAMIN B12 [Concomitant]
  11. VITAMIN D [Concomitant]

REACTIONS (4)
  - Fall [Unknown]
  - Stress fracture [Unknown]
  - Atypical femur fracture [Unknown]
  - Pain in extremity [Unknown]
